FAERS Safety Report 9055212 (Version 2)
Quarter: 2013Q3

REPORT INFORMATION
  Report Type: Spontaneous
  Country: US (occurrence: US)
  Receive Date: 20130206
  Receipt Date: 20130924
  Transmission Date: 20140515
  Serious: No
  Sender: FDA-Public Use
  Company Number: US-009507513-1301USA014808

PATIENT
  Age: 30 Year
  Sex: Female

DRUGS (1)
  1. PREGNYL [Suspect]
     Indication: OVULATION INDUCTION
     Dosage: 10ML INJECTION 1 STANDARD DOSE VIAL OF 1
     Route: 058
     Dates: start: 20130126

REACTIONS (1)
  - Drug ineffective [Recovering/Resolving]
